FAERS Safety Report 10193641 (Version 2)
Quarter: 2016Q3

REPORT INFORMATION
  Report Type: Spontaneous
  Country: US (occurrence: US)
  Receive Date: 20140524
  Receipt Date: 20160921
  Transmission Date: 20161108
  Serious: Yes (Other)
  Sender: FDA-Public Use
  Company Number: US-SA-2014SA007825

PATIENT
  Age: 53 Year
  Sex: Male

DRUGS (5)
  1. SOLOSTAR [Suspect]
     Active Substance: DEVICE
     Dates: start: 20140115, end: 20140123
  2. LANTUS SOLOSTAR [Suspect]
     Active Substance: INSULIN GLARGINE
     Indication: TYPE 2 DIABETES MELLITUS
     Dosage: DOSE:10 UNIT(S)
     Route: 058
     Dates: start: 20140110, end: 20140115
  3. LANTUS SOLOSTAR [Suspect]
     Active Substance: INSULIN GLARGINE
     Indication: TYPE 2 DIABETES MELLITUS
     Dosage: DOSE:10 UNIT(S)
     Route: 058
     Dates: start: 20140115, end: 20140123
  4. SOLOSTAR [Suspect]
     Active Substance: DEVICE
     Dates: start: 20140110, end: 20140115
  5. GLIPIZIDE. [Concomitant]
     Active Substance: GLIPIZIDE
     Dosage: FREQUENCY- EVERY THREE HOURS
     Route: 065

REACTIONS (4)
  - Loss of consciousness [Unknown]
  - Dizziness [Unknown]
  - Blood glucose increased [Unknown]
  - Nausea [Unknown]
